FAERS Safety Report 16532057 (Version 5)
Quarter: 2019Q4

REPORT INFORMATION
  Report Type: Spontaneous
  Country: US (occurrence: US)
  Receive Date: 20190704
  Receipt Date: 20191218
  Transmission Date: 20200122
  Serious: No
  Sender: FDA-Public Use
  Company Number: US-PFIZER INC-2019278314

PATIENT
  Age: 70 Year
  Sex: Male
  Weight: 113 kg

DRUGS (3)
  1. LYRICA [Suspect]
     Active Substance: PREGABALIN
     Indication: NEURALGIA
     Dosage: 150 MG, THREE TIMES A DAY (EVERY 8 HOURS)
     Route: 048
  2. LYRICA [Suspect]
     Active Substance: PREGABALIN
     Indication: TYPE 2 DIABETES MELLITUS
     Dosage: 150 MG, 4X/DAY (EVERY 6 HOURS ORALLY 30 DAYS)
     Route: 048
  3. LYRICA [Suspect]
     Active Substance: PREGABALIN
     Indication: TUMOUR NECROSIS

REACTIONS (4)
  - Feeling abnormal [Recovered/Resolved]
  - Gait disturbance [Recovered/Resolved]
  - Skin lesion [Recovered/Resolved]
  - Blister [Recovered/Resolved]

NARRATIVE: CASE EVENT DATE: 20190728
